FAERS Safety Report 5922311-0 (Version None)
Quarter: 2008Q3

REPORT INFORMATION
  Report Type: 
  Country: None (occurrence: None)
  Receive Date: 20080909
  Receipt Date: 20071206
  Transmission Date: 20090109
  Serious: Yes (Hospitalization)
  Sender: FDA-Public Use
  Company Number: 163-20785-07120428

PATIENT
  Age: 71 Year
  Sex: Female
  Weight: 53.5 kg

DRUGS (14)
  1. THALOMID [Suspect]
     Indication: MULTIPLE MYELOMA
     Dosage: 200-100MG, ORAL
     Route: 048
     Dates: start: 20060502, end: 20070816
  2. DEXAMETHASONE TAB [Suspect]
     Indication: MULTIPLE MYELOMA
     Dosage: 40-20MG
     Dates: start: 20060805, end: 20070823
  3. VELCADE [Suspect]
     Indication: MULTIPLE MYELOMA
     Dosage: 1MG/M2
     Dates: start: 20060429, end: 20070823
  4. LISINOPRIL [Concomitant]
  5. PROCRIT [Concomitant]
  6. RANITIDINE HCL (RANITIDINE HYDROCHLORIDE) (TABLETS) [Concomitant]
  7. ZOLOFT [Concomitant]
  8. FOLIC ACID (FOLIC ACID) (TABLETS) [Concomitant]
  9. DIFLUCAN [Concomitant]
  10. BACTRIM DS [Concomitant]
  11. ACYCLOVIR (ACICLOVIR) (TABLETS) [Concomitant]
  12. OXYCODONE (OXYCODONE) (TABLETS) [Concomitant]
  13. IMODIUM A-D (LOPERAMIDE HYDROCHLORIDE) (TABLETS) [Concomitant]
  14. SLOW-MAG TBCR (MAGNESIUM CHLORIDE ANHYDROUS) [Concomitant]

REACTIONS (1)
  - DIARRHOEA [None]
